FAERS Safety Report 19729746 (Version 1)
Quarter: 2021Q3

REPORT INFORMATION
  Report Type: Report from Study
  Country: US (occurrence: US)
  Receive Date: 20210821
  Receipt Date: 20210821
  Transmission Date: 20211014
  Serious: Yes (Hospitalization)
  Sender: FDA-Public Use
  Company Number: US-UCBSA-2021038501

PATIENT
  Sex: Female

DRUGS (2)
  1. LACOSAMIDE. [Suspect]
     Active Substance: LACOSAMIDE
     Dosage: BREAKING TABLET INTO HALF
  2. LACOSAMIDE. [Suspect]
     Active Substance: LACOSAMIDE
     Indication: SEIZURE
     Dosage: 100MG 1TAB IN MORNING AND 2TABS EVENING

REACTIONS (5)
  - Intentional product misuse [Unknown]
  - Wrong technique in product usage process [Unknown]
  - Product prescribing issue [Unknown]
  - Hospitalisation [Not Recovered/Not Resolved]
  - Product use issue [Unknown]

NARRATIVE: CASE EVENT DATE: 2021
